FAERS Safety Report 4296319-8 (Version None)
Quarter: 2004Q1

REPORT INFORMATION
  Report Type: 
  Country: None (occurrence: None)
  Receive Date: 20040213
  Receipt Date: 20040213
  Transmission Date: 20041129
  Serious: Yes (Hospitalization)
  Sender: FDA-Public Use
  Company Number: None

PATIENT
  Sex: Female
  Weight: 56.6996 kg

DRUGS (14)
  1. COUMADIN [Suspect]
     Indication: ARRHYTHMIA
     Dosage: PO
     Route: 048
  2. DIGOXIN [Concomitant]
  3. COZAAR [Concomitant]
  4. NITROPATCH [Concomitant]
  5. PLAVIX [Concomitant]
  6. LIPITOR [Concomitant]
  7. LOPRESSOR [Concomitant]
  8. SYNTHROID [Concomitant]
  9. ASPIRIN [Concomitant]
  10. LASIX [Concomitant]
  11. POTASSIUM [Concomitant]
  12. PROTONIX [Concomitant]
  13. ALLOPURINOL [Concomitant]
  14. ZOLOFT [Concomitant]

REACTIONS (2)
  - INTERNATIONAL NORMALISED RATIO INCREASED [None]
  - PROTHROMBIN TIME PROLONGED [None]
